FAERS Safety Report 6346579-4 (Version None)
Quarter: 2009Q3

REPORT INFORMATION
  Report Type: 
  Country: None (occurrence: None)
  Receive Date: 20090901
  Receipt Date: 20081231
  Transmission Date: 20100115
  Serious: Yes (Hospitalization)
  Sender: FDA-Public Use
  Company Number: 2009BI000265

PATIENT
  Age: 42 Year
  Sex: Female
  Weight: 100.6985 kg

DRUGS (3)
  1. TYSABRI [Suspect]
     Indication: MULTIPLE SCLEROSIS
     Dosage: 300 MG;QM;IV
     Route: 042
     Dates: start: 20070801
  2. CON MEDS [Concomitant]
  3. PREV MEDS [Concomitant]

REACTIONS (5)
  - APPENDICITIS [None]
  - MUSCLE SPASTICITY [None]
  - MUSCLE TIGHTNESS [None]
  - POSTOPERATIVE WOUND INFECTION [None]
  - PRURITUS [None]
